FAERS Safety Report 9296274 (Version 1)
Quarter: 2013Q2

REPORT INFORMATION
  Report Type: Spontaneous
  Country: NL (occurrence: NL)
  Receive Date: 20130517
  Receipt Date: 20130517
  Transmission Date: 20140414
  Serious: Yes (Hospitalization)
  Sender: FDA-Public Use
  Company Number: NL-ABBOTT-13X-114-1089050-00

PATIENT
  Age: 73 Year
  Sex: Male

DRUGS (10)
  1. PANTOPAC [Suspect]
     Indication: HELICOBACTER INFECTION
     Dosage: 6 DOSAGE FORMS (3 DOSAGE FORMS,3 TABLETS TWICE DAILY)
     Route: 048
     Dates: start: 201211, end: 20121124
  2. PANTOPAC [Suspect]
     Indication: HELICOBACTER INFECTION
     Dosage: 6 DOSAGE FORMS (3 DOSAGE FORMS,3 TABLETS TWICE DAILY)
     Route: 048
     Dates: start: 201211, end: 20121124
  3. PANTOPAC [Suspect]
     Indication: HELICOBACTER INFECTION
     Dosage: 6 DOSAGE FORMS (3 DOSAGE FORMS,3 TABLETS TWICE DAILY)
     Route: 048
     Dates: start: 201211, end: 20121124
  4. PANTOZOL [Concomitant]
     Indication: PRODUCT USED FOR UNKNOWN INDICATION
     Route: 048
  5. FUROSEMIDE [Concomitant]
     Indication: PRODUCT USED FOR UNKNOWN INDICATION
     Route: 048
  6. FUROSEMIDE [Concomitant]
     Route: 048
  7. ACENOCOUMAROL [Concomitant]
     Indication: THROMBOSIS
     Route: 048
  8. METOPROLOL [Concomitant]
     Indication: PRODUCT USED FOR UNKNOWN INDICATION
     Route: 048
  9. METOPROLOL [Concomitant]
     Route: 048
  10. ALFACALCIDOL [Concomitant]
     Indication: PRODUCT USED FOR UNKNOWN INDICATION
     Route: 048

REACTIONS (2)
  - Respiratory failure [Unknown]
  - Tubulointerstitial nephritis [Unknown]
